FAERS Safety Report 24625661 (Version 1)
Quarter: 2024Q4

REPORT INFORMATION
  Report Type: Spontaneous
  Country: FR (occurrence: FR)
  Receive Date: 20241115
  Receipt Date: 20241115
  Transmission Date: 20250114
  Serious: Yes (Hospitalization)
  Sender: B BRAUN
  Company Number: FR-B.Braun Medical Inc.-2165143

PATIENT
  Age: 78 Year
  Sex: Female

DRUGS (5)
  1. CEFTRIAXONE SODIUM [Suspect]
     Active Substance: CEFTRIAXONE SODIUM
     Indication: Colitis
     Dates: start: 20240806, end: 20240812
  2. UNSPECIFIED INGREDIENT [Suspect]
     Active Substance: UNSPECIFIED INGREDIENT
  3. RACECADOTRIL [Suspect]
     Active Substance: RACECADOTRIL
  4. METRONIDAZOLE [Suspect]
     Active Substance: METRONIDAZOLE
  5. IOBITRIDOL [Suspect]
     Active Substance: IOBITRIDOL

REACTIONS (1)
  - Acute generalised exanthematous pustulosis [Recovering/Resolving]
